FAERS Safety Report 5521162-9 (Version None)
Quarter: 2007Q4

REPORT INFORMATION
  Report Type: 
  Country: None (occurrence: None)
  Receive Date: 20071119
  Receipt Date: 20071115
  Transmission Date: 20080405
  Serious: Yes (Life-Threatening, Other)
  Sender: FDA-Public Use
  Company Number: RU-SHR-RU-2007-043292

PATIENT
  Age: 64 Year
  Sex: Female
  Weight: 78 kg

DRUGS (9)
  1. FLUDARABINE PHOSPHATE [Suspect]
     Dosage: 25 MG/M2, UNK
     Route: 042
     Dates: start: 20050531, end: 20050705
  2. FLUDARABINE PHOSPHATE [Suspect]
     Dosage: 34 MG, UNK
     Route: 042
     Dates: start: 20050706, end: 20051011
  3. FLUDARABINE PHOSPHATE [Suspect]
     Dosage: 23 MG, UNK
     Route: 042
     Dates: start: 20051012
  4. CYCLOPHOSPHAMIDE [Suspect]
     Dosage: 250 MG/M2, UNK
     Route: 042
     Dates: start: 20050531, end: 20050705
  5. CYCLOPHOSPHAMIDE [Suspect]
     Dosage: 338 MG, UNK
     Route: 042
     Dates: start: 20050706, end: 20051011
  6. CYCLOPHOSPHAMIDE [Suspect]
     Dosage: 230 MG/D, UNK
     Route: 042
     Dates: start: 20051012
  7. CONTRIMOXAZOLE [Concomitant]
     Dosage: 960 UNK, UNK
     Dates: start: 20050601, end: 20051120
  8. ALLOPURINOL [Concomitant]
     Dosage: 300 UNK, UNK
     Dates: start: 20050527, end: 20050604
  9. ACYCLOVIR [Concomitant]
     Dosage: 100 UNK, UNK
     Dates: start: 20050629, end: 20051120

REACTIONS (2)
  - CHRONIC MYELOMONOCYTIC LEUKAEMIA [None]
  - NEUTROPENIA [None]
